FAERS Safety Report 23251049 (Version 1)
Quarter: 2023Q4

REPORT INFORMATION
  Report Type: Spontaneous
  Country: US (occurrence: US)
  Receive Date: 20231201
  Receipt Date: 20231201
  Transmission Date: 20240110
  Serious: Yes (Other)
  Sender: FDA-Public Use
  Company Number: US-TORRENT-00013006

PATIENT
  Age: 58 None
  Sex: Female

DRUGS (1)
  1. ITRACONAZOLE [Suspect]
     Active Substance: ITRACONAZOLE
     Indication: Histoplasmosis
     Dosage: UNKNOWN
     Route: 065

REACTIONS (3)
  - Hypopituitarism [Unknown]
  - Condition aggravated [Unknown]
  - Histoplasmosis [Unknown]
